FAERS Safety Report 6071273-7 (Version None)
Quarter: 2009Q1

REPORT INFORMATION
  Report Type: 
  Country: None (occurrence: None)
  Receive Date: 20090204
  Receipt Date: 20090119
  Transmission Date: 20090719
  Serious: Yes (Hospitalization, Other)
  Sender: FDA-Public Use
  Company Number: 2009S1000949

PATIENT
  Age: 2 Month
  Sex: Female

DRUGS (1)
  1. AMITRIPTYLINE HYDROCHLORIDE [Suspect]
     Indication: POISONING DELIBERATE
     Dates: end: 20040101

REACTIONS (8)
  - CRYING [None]
  - EXTRAPYRAMIDAL DISORDER [None]
  - GRAND MAL CONVULSION [None]
  - HYPOTONIA [None]
  - POISONING DELIBERATE [None]
  - VENTRICULAR FIBRILLATION [None]
  - VENTRICULAR TACHYCARDIA [None]
  - VICTIM OF CRIME [None]
